FAERS Safety Report 9381550 (Version 2)
Quarter: 2013Q3

REPORT INFORMATION
  Report Type: Spontaneous
  Country: DK (occurrence: DK)
  Receive Date: 20130703
  Receipt Date: 20130903
  Transmission Date: 20140515
  Serious: Yes (Other)
  Sender: FDA-Public Use
  Company Number: DK-ELI_LILLY_AND_COMPANY-DK201306006897

PATIENT
  Sex: Female

DRUGS (5)
  1. ZYPADHERA [Suspect]
     Indication: SCHIZOPHRENIA
     Dosage: UNK, UNKNOWN
     Route: 030
     Dates: start: 20121206, end: 20130327
  2. ZYPREXA [Suspect]
     Indication: SCHIZOPHRENIA
     Dosage: 10 MG, EACH MORNING
     Route: 065
     Dates: start: 20130327
  3. ZYPREXA [Suspect]
     Dosage: 20 MG, EACH EVENING
     Route: 065
     Dates: start: 20130327
  4. CLONAZEPAM [Concomitant]
     Indication: SEDATIVE THERAPY
     Dosage: 0.5 MG, UNKNOWN
     Route: 065
  5. LOSEC                              /00661201/ [Concomitant]
     Indication: DYSPEPSIA

REACTIONS (4)
  - Placental insufficiency [Recovered/Resolved]
  - Gestational diabetes [Recovered/Resolved]
  - Maternal exposure during pregnancy [Recovered/Resolved]
  - Prescribed overdose [Not Recovered/Not Resolved]
